FAERS Safety Report 8234812-3 (Version None)
Quarter: 2012Q1

REPORT INFORMATION
  Report Type: 
  Country: None (occurrence: None)
  Receive Date: 20120326
  Receipt Date: 20120312
  Transmission Date: 20120608
  Serious: Yes (Other)
  Sender: FDA-Public Use
  Company Number: JP-ROCHE-1049639

PATIENT
  Sex: Female

DRUGS (19)
  1. ACTEMRA [Suspect]
     Route: 041
     Dates: start: 20101018
  2. PROGRAF [Concomitant]
     Route: 048
     Dates: start: 20100617
  3. SOLON [Concomitant]
     Indication: PROPHYLAXIS
     Route: 048
  4. RHEUMATREX [Concomitant]
     Route: 048
  5. RHEUMATREX [Concomitant]
     Route: 048
  6. FOLIC ACID [Concomitant]
     Indication: PROPHYLAXIS
     Route: 048
  7. FOSAMAX [Concomitant]
     Route: 048
     Dates: start: 20100715, end: 20110313
  8. BERBERINE HYDROCHLORIDE AND GERANIUM THUNBERGII AND BERBERINE HYDROCHL [Suspect]
     Indication: PRODUCT USED FOR UNKNOWN INDICATION
     Dosage: DOSAGE IS UNCERTAIN.
     Route: 048
  9. AZULFIDINE [Concomitant]
     Indication: RHEUMATOID ARTHRITIS
     Route: 048
  10. LOXONIN [Concomitant]
     Indication: RHEUMATOID ARTHRITIS
     Route: 048
  11. LOXONIN [Concomitant]
     Route: 048
  12. BREDININ [Concomitant]
     Indication: RHEUMATOID ARTHRITIS
     Dosage: MONDAY, TUESDAY, WEDNESDAY
     Route: 048
  13. SORNILART [Concomitant]
     Indication: PROPHYLAXIS
     Route: 048
  14. ONEALFA [Concomitant]
     Route: 048
     Dates: start: 20110314
  15. PROGRAF [Concomitant]
     Indication: RHEUMATOID ARTHRITIS
     Route: 048
  16. ACTEMRA [Suspect]
     Indication: RHEUMATOID ARTHRITIS
     Route: 041
     Dates: start: 20090601, end: 20100816
  17. RHEUMATREX [Concomitant]
     Indication: RHEUMATOID ARTHRITIS
     Route: 048
  18. LANSOPRAZOLE [Concomitant]
     Indication: PROPHYLAXIS
     Route: 048
     Dates: start: 20091119
  19. EVISTA [Concomitant]
     Route: 048
     Dates: start: 20110314

REACTIONS (4)
  - DIARRHOEA [None]
  - STOMATITIS [None]
  - DRUG ERUPTION [None]
  - MALAISE [None]
